FAERS Safety Report 24729867 (Version 1)
Quarter: 2024Q4

REPORT INFORMATION
  Report Type: Spontaneous
  Country: FR (occurrence: FR)
  Receive Date: 20241213
  Receipt Date: 20241213
  Transmission Date: 20250115
  Serious: Yes (Hospitalization)
  Sender: ABBVIE
  Company Number: None

PATIENT
  Age: 30 Year
  Sex: Female
  Weight: 59 kg

DRUGS (2)
  1. BOTOX [Suspect]
     Active Substance: ONABOTULINUMTOXINA
     Indication: Pelvic floor dysfunction
     Dosage: TIME INTERVAL: AS NECESSARY: 100 UNITES ALLERGAN
     Route: 030
     Dates: start: 20240826, end: 20240826
  2. KETAMINE [Concomitant]
     Active Substance: KETAMINE
     Indication: Product used for unknown indication
     Dosage: 37MG IN THE MORNING ON MONDAY, TUESDAY, WEDNESDAY, THURSDAY, FRIDAY? 50 MG/ML, SOLUTION INJECTABLE
     Route: 042

REACTIONS (1)
  - Urinary incontinence [Recovering/Resolving]

NARRATIVE: CASE EVENT DATE: 20240827
